FAERS Safety Report 19444655 (Version 1)
Quarter: 2021Q2

REPORT INFORMATION
  Report Type: Spontaneous
  Country: ES (occurrence: ES)
  Receive Date: 20210621
  Receipt Date: 20210621
  Transmission Date: 20210717
  Serious: Yes (Hospitalization, Other)
  Sender: FDA-Public Use
  Company Number: ES-MYLANLABS-2021M1035535

PATIENT
  Age: 51 Year
  Sex: Female

DRUGS (3)
  1. FENTANYL. [Suspect]
     Active Substance: FENTANYL
     Indication: TRIGEMINAL NEURALGIA
     Dosage: 12 MICROGRAM
     Route: 062
     Dates: start: 20201211, end: 20201213
  2. FENITOINA                          /00017401/ [Interacting]
     Active Substance: PHENYTOIN
     Indication: TRIGEMINAL NEURALGIA
     Dosage: 100 MILLIGRAM, Q8H
     Route: 048
     Dates: start: 20201211, end: 20201213
  3. BACLOFENO [Interacting]
     Active Substance: BACLOFEN
     Indication: TRIGEMINAL NEURALGIA
     Dosage: 50 MILLIGRAM, Q8H
     Route: 048
     Dates: start: 20201211, end: 20201213

REACTIONS (3)
  - Somnolence [Recovered/Resolved]
  - Drug interaction [Recovered/Resolved]
  - Clonic convulsion [Recovered/Resolved]

NARRATIVE: CASE EVENT DATE: 20201213
